FAERS Safety Report 8170849-0 (Version None)
Quarter: 2012Q1

REPORT INFORMATION
  Report Type: 
  Country: None (occurrence: None)
  Receive Date: 20120228
  Receipt Date: 20120216
  Transmission Date: 20120608
  Serious: Yes (Hospitalization, Other)
  Sender: FDA-Public Use
  Company Number: US-BAYER-2011-087534

PATIENT
  Age: 32 Year
  Sex: Female
  Weight: 54.422 kg

DRUGS (9)
  1. YASMIN [Suspect]
     Dosage: UNK
     Dates: start: 20060101, end: 20090101
  2. NEURONTIN [Concomitant]
     Indication: FIBROMYALGIA
     Dosage: 300 MG, TID
     Route: 048
     Dates: start: 20060101
  3. PROTONIX [Concomitant]
     Dosage: 40 MG, 2 TAB ONCE EACH MORNING
     Route: 048
     Dates: start: 20090303
  4. CELEBREX [Concomitant]
     Dosage: 200 MG, QD
     Route: 048
     Dates: start: 20090507
  5. LAMICTAL [Concomitant]
     Indication: BIPOLAR DISORDER
     Dosage: 300 MG, QD
     Route: 048
     Dates: start: 20080101
  6. RISPERDAL [Concomitant]
     Indication: BIPOLAR DISORDER
     Dosage: 0.5 MG, HS
     Route: 048
     Dates: start: 20080101
  7. ALLEGRA [Concomitant]
     Indication: SEASONAL ALLERGY
     Dosage: 180 MG, QD
     Route: 048
     Dates: start: 20050101
  8. XANAX [Concomitant]
     Indication: BIPOLAR DISORDER
     Dosage: UNK
     Dates: start: 20080101
  9. DROSPIRENONE AND ETHINYL ESTRADIOL [Suspect]
     Dosage: UNK
     Dates: start: 20060101, end: 20090101

REACTIONS (5)
  - CHOLECYSTITIS CHRONIC [None]
  - BILIARY DYSKINESIA [None]
  - HEPATOBILIARY SCAN ABNORMAL [None]
  - NEPHROLITHIASIS [None]
  - PAIN [None]
